FAERS Safety Report 19836640 (Version 1)
Quarter: 2021Q3

REPORT INFORMATION
  Report Type: Spontaneous
  Country: US (occurrence: US)
  Receive Date: 20210916
  Receipt Date: 20210916
  Transmission Date: 20211014
  Serious: Yes (Hospitalization, Other)
  Sender: FDA-Public Use
  Company Number: US-UNITED THERAPEUTICS-UNT-2021-015924

PATIENT
  Age: 53 Year
  Sex: Female
  Weight: 61.22 kg

DRUGS (5)
  1. TYVASO [Suspect]
     Active Substance: TREPROSTINIL
     Indication: PULMONARY ARTERIAL HYPERTENSION
     Dosage: UNK
     Dates: start: 20200911
  2. VELETRI [Suspect]
     Active Substance: EPOPROSTENOL
     Dosage: 0.015 ?G/KG, (21600 NG/KG; 1 TIME EVERY 1 MINUTE)
     Route: 042
     Dates: start: 20210817
  3. AMBRISENTAN [Concomitant]
     Active Substance: AMBRISENTAN
     Indication: PRODUCT USED FOR UNKNOWN INDICATION
     Dosage: UNK
     Route: 065
  4. TYVASO [Suspect]
     Active Substance: TREPROSTINIL
     Dosage: 18?54 ?G, QID
     Dates: end: 202108
  5. VELETRI [Suspect]
     Active Substance: EPOPROSTENOL
     Indication: PULMONARY ARTERIAL HYPERTENSION
     Dosage: 0.014 ?G/KG (20160 NG/KG; 1 TIME EVERY 1 MINUTE)
     Route: 042
     Dates: start: 202108, end: 202108

REACTIONS (5)
  - Cardiomegaly [Unknown]
  - Myalgia [Unknown]
  - Pain in jaw [Unknown]
  - Systemic lupus erythematosus rash [Unknown]
  - Pulmonary hypertension [Not Recovered/Not Resolved]

NARRATIVE: CASE EVENT DATE: 202108
